FAERS Safety Report 12431822 (Version 1)
Quarter: 2016Q2

REPORT INFORMATION
  Report Type: Spontaneous
  Country: US (occurrence: US)
  Receive Date: 20160603
  Receipt Date: 20160603
  Transmission Date: 20160815
  Serious: No
  Sender: FDA-Public Use
  Company Number: US-SUN PHARMACEUTICAL INDUSTRIES LTD-2016SUN00198

PATIENT
  Age: 86 Year
  Sex: Female

DRUGS (2)
  1. TECHNETIUM TC-99M SULFUR COLLOID KIT [Suspect]
     Active Substance: TECHNETIUM TC-99M SULFUR COLLOID
     Indication: LYMPHATIC MAPPING
     Dosage: 300 ?CI IN 0.3ML, SUBAREOLAR, OD
     Route: 058
     Dates: start: 20160222, end: 20160222
  2. METHYLENE BLUE. [Suspect]
     Active Substance: METHYLENE BLUE
     Indication: LYMPHATIC MAPPING
     Dosage: UNK
     Route: 065
     Dates: start: 20160222, end: 20160222

REACTIONS (3)
  - Drug ineffective [None]
  - Radioisotope scan abnormal [Recovered/Resolved]
  - Procedural complication [None]

NARRATIVE: CASE EVENT DATE: 20160222
